FAERS Safety Report 18675366 (Version 1)
Quarter: 2020Q4

REPORT INFORMATION
  Report Type: Spontaneous
  Country: JP (occurrence: JP)
  Receive Date: 20201229
  Receipt Date: 20201229
  Transmission Date: 20210114
  Serious: Yes (Death, Life-Threatening, Hospitalization)
  Sender: FDA-Public Use
  Company Number: JP-ELI_LILLY_AND_COMPANY-JP202011009027

PATIENT
  Age: 59 Year
  Sex: Male
  Weight: 61 kg

DRUGS (2)
  1. CYRAMZA [Suspect]
     Active Substance: RAMUCIRUMAB
     Indication: OESOPHAGEAL ADENOCARCINOMA STAGE IV
     Dosage: 480 MG, CYCLICAL
     Route: 042
     Dates: start: 20191108, end: 20191225
  2. ABRAXANE [Concomitant]
     Active Substance: PACLITAXEL
     Indication: OESOPHAGEAL ADENOCARCINOMA STAGE IV
     Dosage: 160 MG, CYCLICAL
     Route: 042
     Dates: start: 20191108, end: 20191225

REACTIONS (2)
  - Infectious pleural effusion [Fatal]
  - Gastric perforation [Fatal]

NARRATIVE: CASE EVENT DATE: 20191227
